FAERS Safety Report 9992629 (Version 2)
Quarter: 2014Q2

REPORT INFORMATION
  Report Type: Spontaneous
  Country: US (occurrence: US)
  Receive Date: 20140310
  Receipt Date: 20140401
  Transmission Date: 20141212
  Serious: Yes (Hospitalization)
  Sender: FDA-Public Use
  Company Number: US-B.I. PHARMACEUTICALS,INC./RIDGEFIELD-2014-BI-09518BP

PATIENT
  Age: 68 Year
  Sex: Male
  Weight: 62 kg

DRUGS (10)
  1. SPIRIVA [Suspect]
     Indication: CHRONIC OBSTRUCTIVE PULMONARY DISEASE
     Dosage: 18 MCG
     Route: 055
     Dates: start: 2011
  2. SYMBICORT [Concomitant]
     Indication: CHRONIC OBSTRUCTIVE PULMONARY DISEASE
     Dosage: 4 PUF
     Route: 055
  3. DALIRESP [Concomitant]
     Indication: CHRONIC OBSTRUCTIVE PULMONARY DISEASE
     Dosage: 500 MG
     Route: 048
  4. FUROSEMIDE [Concomitant]
     Indication: LOCAL SWELLING
     Dosage: 20 MG
     Route: 048
  5. COZAAR [Concomitant]
     Indication: HYPERTENSION
     Dosage: 100 MG
     Route: 048
  6. CARTIA XT [Concomitant]
     Indication: HYPERTENSION
     Dosage: 240 MG
     Route: 048
  7. KLONOPIN [Concomitant]
     Indication: ANXIETY
     Dosage: 15 MG
     Route: 048
  8. AMBIEN [Concomitant]
     Indication: SLEEP DISORDER
     Dosage: 10 MG
     Route: 048
  9. ASPIRIN [Concomitant]
     Dosage: 81 MG
     Route: 048
  10. PROAIR [Concomitant]
     Indication: CHRONIC OBSTRUCTIVE PULMONARY DISEASE
     Route: 055

REACTIONS (7)
  - Chronic obstructive pulmonary disease [Recovered/Resolved]
  - Chronic obstructive pulmonary disease [Recovered/Resolved]
  - Upper respiratory tract infection [Recovered/Resolved]
  - Chronic obstructive pulmonary disease [Recovered/Resolved]
  - Dyspnoea [Recovered/Resolved]
  - Product quality issue [Recovered/Resolved]
  - Product quality issue [Recovered/Resolved]
